FAERS Safety Report 18993136 (Version 5)
Quarter: 2021Q3

REPORT INFORMATION
  Report Type: Report from Study
  Country: US (occurrence: US)
  Receive Date: 20210310
  Receipt Date: 20210914
  Transmission Date: 20211014
  Serious: No
  Sender: FDA-Public Use
  Company Number: NVSC2021US054883

PATIENT
  Sex: Female

DRUGS (3)
  1. COUMADIN [Concomitant]
     Active Substance: WARFARIN SODIUM
     Indication: PRODUCT USED FOR UNKNOWN INDICATION
     Dosage: UNK
     Route: 065
  2. ENTRESTO [Suspect]
     Active Substance: SACUBITRIL\VALSARTAN
     Indication: CARDIAC FAILURE
     Dosage: UNK
     Route: 048
  3. ENTRESTO [Suspect]
     Active Substance: SACUBITRIL\VALSARTAN
     Dosage: 1 DF, BID (97/103 MG)
     Route: 048
     Dates: start: 202101

REACTIONS (10)
  - Anxiety [Unknown]
  - Hypotension [Unknown]
  - Mood altered [Unknown]
  - Malaise [Unknown]
  - Amnesia [Unknown]
  - Asthenia [Unknown]
  - Weight decreased [Unknown]
  - Depression [Unknown]
  - Product availability issue [Unknown]
  - Inappropriate schedule of product administration [Unknown]
